APPROVED DRUG PRODUCT: MORPHINE SULFATE
Active Ingredient: MORPHINE SULFATE
Strength: 30MG
Dosage Form/Route: TABLET;ORAL
Application: A212451 | Product #002 | TE Code: AB
Applicant: ALKEM LABORATORIES LTD
Approved: Dec 3, 2020 | RLD: No | RS: No | Type: RX